FAERS Safety Report 15616334 (Version 10)
Quarter: 2019Q3

REPORT INFORMATION
  Report Type: Report from Study
  Country: None (occurrence: CH)
  Receive Date: 20181114
  Receipt Date: 20190819
  Transmission Date: 20191004
  Serious: Yes (Hospitalization, Other)
  Sender: FDA-Public Use
  Company Number: CH-ABBVIE-18S-151-2550775-00

PATIENT
  Age: 77 Year
  Sex: Female

DRUGS (23)
  1. DUODOPA [Suspect]
     Active Substance: CARBIDOPA\LEVODOPA
     Dosage: MORING DOSE: 4.5 ML, CONTINUOUS RATE DAY: 1.5 ML/H, 16 H THERAPY
     Route: 050
     Dates: start: 20190103, end: 2019
  2. DOMPERIDON [Concomitant]
     Active Substance: DOMPERIDONE
     Indication: NAUSEA
     Dosage: AS NEEDED, 1-3 X TIMES PER DAY
     Route: 048
  3. DUODOPA [Suspect]
     Active Substance: CARBIDOPA\LEVODOPA
     Indication: PARKINSON^S DISEASE
     Route: 050
     Dates: start: 20150427, end: 20171012
  4. CLOPIN ECO [Concomitant]
     Active Substance: CLOZAPINE
     Indication: HALLUCINATION
  5. LEVODOPA AND DECARBOXYLASE INHIBITOR [Concomitant]
     Indication: PARKINSON^S DISEASE
     Dosage: AT 22:00
     Route: 048
     Dates: start: 20181106
  6. DELTAPARIN [Concomitant]
     Indication: PRODUCT USED FOR UNKNOWN INDICATION
     Dosage: AT NIGHT
  7. DUODOPA [Suspect]
     Active Substance: CARBIDOPA\LEVODOPA
     Dosage: MD 4.5 ML, CRD 4.5 ML/H, ED 2ML
     Route: 050
     Dates: start: 20190103, end: 20190225
  8. DOMPERIDON [Concomitant]
     Active Substance: DOMPERIDONE
     Indication: VOMITING
  9. CLOPIN ECO [Concomitant]
     Active Substance: CLOZAPINE
     Indication: RESTLESSNESS
     Dosage: AS NEEDED, 1X 12,5 MG PER DAY
     Route: 048
  10. MOVICOL [Concomitant]
     Active Substance: POLYETHYLENE GLYCOL 3350\POTASSIUM CHLORIDE\SODIUM BICARBONATE\SODIUM CHLORIDE
     Indication: CONSTIPATION
     Dosage: AS NEEDED, 1-3 X SACHETS PER DAY
     Route: 048
  11. MEBUCAINE [Concomitant]
     Indication: OROPHARYNGEAL PAIN
     Dosage: AS NEEDED
     Route: 048
  12. DUODOPA [Suspect]
     Active Substance: CARBIDOPA\LEVODOPA
     Dosage: MORNING DOSE 6ML?CONTINUOUS RATE 2.1ML/H?EXTRA DOSE 2ML?16H THERAPY
     Route: 050
     Dates: start: 20171012, end: 20181015
  13. DUODOPA [Suspect]
     Active Substance: CARBIDOPA\LEVODOPA
     Dosage: MORNING DOSE 6ML?CONTINUOUS RATE 2ML/H?EXTRA DOSE 2ML, 16 H THERAPY?16H THERAPY
     Route: 050
     Dates: start: 20181015
  14. DUODOPA [Suspect]
     Active Substance: CARBIDOPA\LEVODOPA
     Dosage: MD 4.5 ML, CRD 4.5 ML/H, ED 2ML
     Route: 050
     Dates: start: 20190225, end: 20190227
  15. REDORMIN [Concomitant]
     Indication: SLEEP DISORDER
     Dosage: AS NEEDED, 1 TABLET PER DAY
     Route: 058
  16. LORAZEPAM. [Concomitant]
     Active Substance: LORAZEPAM
     Indication: RESTLESSNESS
     Dosage: AS NEEDED, 1X 0.5 MG PER DAY
     Route: 048
  17. DUODOPA [Suspect]
     Active Substance: CARBIDOPA\LEVODOPA
     Dosage: MD 4.5 ML, CRD 4.5 ML/H, ED 2ML
     Route: 050
     Dates: start: 20190227, end: 2019
  18. DUODOPA [Suspect]
     Active Substance: CARBIDOPA\LEVODOPA
     Dosage: MD 4.5 ML, CRD 4.5 ML/H, ED 2ML?16 H THERAPY
     Route: 050
     Dates: start: 2019, end: 20190814
  19. NOVALGIN [Concomitant]
     Indication: PAIN
     Dosage: AS NEEDED, UP TO 4 TIMES PER DAY
     Route: 048
  20. LECICARBON [Concomitant]
     Active Substance: SODIUM BICARBONATE\SODIUM PHOSPHATE, MONOBASIC
     Indication: PRODUCT USED FOR UNKNOWN INDICATION
     Dosage: AS NEEDED, 1 X PER DAY
     Route: 054
  21. BELLAFIT [Concomitant]
     Indication: PRODUCT USED FOR UNKNOWN INDICATION
     Dosage: MAXIMUM 1 TIME PER 24 H
  22. DUODOPA [Suspect]
     Active Substance: CARBIDOPA\LEVODOPA
     Dosage: MD:4.5 ML CRD:4.5 ML/H ED: 1.5 ML  EDBT: 2 H, LL: LOCK LEVEL 0?16 H THERAPY
     Route: 050
     Dates: start: 20190814
  23. MIRTAZAPIN [Concomitant]
     Active Substance: MIRTAZAPINE
     Indication: DEPRESSION
     Dosage: IN THE EVENING
     Route: 048
     Dates: start: 20181231

REACTIONS (36)
  - Procedural site reaction [Recovered/Resolved]
  - Craniocerebral injury [Unknown]
  - Fall [Recovered/Resolved]
  - Freezing phenomenon [Not Recovered/Not Resolved]
  - Dysphagia [Recovered/Resolved]
  - Orthostatic intolerance [Unknown]
  - Stoma site irritation [Recovered/Resolved]
  - Muscle rigidity [Not Recovered/Not Resolved]
  - Device occlusion [Recovered/Resolved]
  - Off label use [Recovered/Resolved]
  - Agitation [Recovered/Resolved]
  - Stoma site discharge [Recovered/Resolved]
  - Stoma site hypergranulation [Recovered/Resolved]
  - Weight decreased [Recovered/Resolved]
  - Paranasal sinus haemorrhage [Unknown]
  - Aspiration [Unknown]
  - Hallucination, visual [Recovered/Resolved]
  - Wrong technique in device usage process [Unknown]
  - Jaw fracture [Unknown]
  - Off label use [Recovered/Resolved]
  - Device battery issue [Unknown]
  - Device occlusion [Recovered/Resolved]
  - Dyskinesia [Not Recovered/Not Resolved]
  - Intentional product misuse [Not Recovered/Not Resolved]
  - Skin laceration [Unknown]
  - Somnolence [Recovered/Resolved]
  - Dementia [Recovered/Resolved]
  - Therapeutic product effect variable [Unknown]
  - Parkinsonism [Unknown]
  - Weight decreased [Recovered/Resolved]
  - Injury [Unknown]
  - Akinesia [Recovered/Resolved]
  - Device alarm issue [Recovered/Resolved]
  - Stoma site erythema [Recovered/Resolved]
  - Urinary tract infection [Unknown]
  - Device dislocation [Recovered/Resolved]

NARRATIVE: CASE EVENT DATE: 20181022
